FAERS Safety Report 4383612-3 (Version None)
Quarter: 2004Q2

REPORT INFORMATION
  Report Type: 
  Country: None (occurrence: None)
  Receive Date: 20040623
  Receipt Date: 20031210
  Transmission Date: 20050107
  Serious: Yes (Death, Other)
  Sender: FDA-Public Use
  Company Number: PHHO2003JP16173

PATIENT
  Age: 63 Year
  Sex: Female
  Weight: 50 kg

DRUGS (20)
  1. GLEEVEC [Suspect]
     Indication: CHRONIC MYELOID LEUKAEMIA
     Dosage: 400 MG, QD
     Route: 048
     Dates: start: 20021018, end: 20021029
  2. GLEEVEC [Suspect]
     Dosage: 300 MG, QD
     Route: 048
     Dates: start: 20021030, end: 20021111
  3. GLEEVEC [Suspect]
     Dosage: NO TREATMENT
     Dates: start: 20021112, end: 20021127
  4. GLEEVEC [Suspect]
     Dosage: 200 MG, QD
     Route: 048
     Dates: start: 20021128, end: 20021218
  5. GLEEVEC [Suspect]
     Dosage: 100 MG, QD
     Route: 048
     Dates: start: 20021219, end: 20030407
  6. GLEEVEC [Suspect]
     Dosage: 300 MG, QD
     Route: 048
     Dates: start: 20030408, end: 20030417
  7. GLEEVEC [Suspect]
     Dosage: 200 MG, QD
     Route: 048
     Dates: start: 20030418, end: 20030425
  8. GLEEVEC [Suspect]
     Dosage: 300 MG, QD
     Route: 048
     Dates: start: 20030426, end: 20030522
  9. GLEEVEC [Suspect]
     Dosage: 400 MG, QD
     Route: 048
     Dates: start: 20030523, end: 20030626
  10. GLEEVEC [Suspect]
     Dosage: 500 MG, QD
     Route: 048
     Dates: start: 20030627, end: 20030811
  11. GLEEVEC [Suspect]
     Dosage: 400 MG, QD
     Route: 048
     Dates: start: 20030812, end: 20031126
  12. GLEEVEC [Suspect]
     Dosage: 300 MG, QD
     Route: 048
     Dates: start: 20031127, end: 20031223
  13. LEUKERIN [Suspect]
     Dosage: .5 G, QD
     Dates: start: 20030728, end: 20030820
  14. LEUKERIN [Suspect]
     Dosage: .5 G, QD
     Dates: start: 20030925
  15. LEUKERIN [Suspect]
     Dosage: .3 G, QD
  16. LEUKERIN [Suspect]
     Dosage: .4 G, QD
  17. LEUKERIN [Suspect]
     Dosage: .6 G, QD
     Dates: end: 20031217
  18. LASIX [Concomitant]
     Dosage: 30 MG, UNK
     Dates: start: 20031027, end: 20031127
  19. LASIX [Concomitant]
     Dates: start: 20031201
  20. ZANTAC [Concomitant]
     Dates: start: 20030418

REACTIONS (7)
  - BONE MARROW DEPRESSION [None]
  - HAEMOGLOBIN DECREASED [None]
  - MALIGNANT NEOPLASM PROGRESSION [None]
  - NEUTROPHIL COUNT DECREASED [None]
  - PLATELET COUNT DECREASED [None]
  - PLEURAL EFFUSION [None]
  - PNEUMONIA [None]
